FAERS Safety Report 25767482 (Version 1)
Quarter: 2025Q3

REPORT INFORMATION
  Report Type: Spontaneous
  Country: US (occurrence: None)
  Receive Date: 20250904
  Receipt Date: 20250904
  Transmission Date: 20251020
  Serious: Yes (Other)
  Sender: FDA-CTU
  Company Number: None

PATIENT
  Age: 43 Year
  Sex: Female
  Weight: 92.25 kg

DRUGS (10)
  1. TRULICITY [Suspect]
     Active Substance: DULAGLUTIDE
     Indication: Type 2 diabetes mellitus
     Route: 050
     Dates: start: 20250811, end: 20250815
  2. SERTRALINE [Concomitant]
     Active Substance: SERTRALINE HYDROCHLORIDE
  3. Buproprion 450 mg [Concomitant]
  4. Levothyroxin 25mcg [Concomitant]
  5. Generic Adderall ER [Concomitant]
  6. ALLEGRA [Concomitant]
     Active Substance: FEXOFENADINE HYDROCHLORIDE
  7. FLONASE [Concomitant]
     Active Substance: FLUTICASONE PROPIONATE
  8. IBUPROFEN [Concomitant]
     Active Substance: IBUPROFEN
  9. Moisturizing eye drops [Concomitant]
  10. INOSITOL [Concomitant]
     Active Substance: INOSITOL

REACTIONS (7)
  - Decreased appetite [None]
  - Diarrhoea [None]
  - Abdominal pain upper [None]
  - Nausea [None]
  - Vomiting [None]
  - Poor quality sleep [None]
  - Dehydration [None]

NARRATIVE: CASE EVENT DATE: 20250811
